FAERS Safety Report 8826329 (Version 1)
Quarter: 2012Q4

REPORT INFORMATION
  Report Type: 
  Country: FR (occurrence: FR)
  Receive Date: 20121005
  Receipt Date: 20121005
  Transmission Date: 20130627
  Serious: Yes (Other)
  Sender: FDA-Public Use
  Company Number: FR-ABBOTT-12P-056-0991319-00

PATIENT
  Age: 29 Year
  Sex: Male

DRUGS (7)
  1. DEPAKINE [Suspect]
     Indication: STATUS EPILEPTICUS
     Route: 048
     Dates: start: 20120722, end: 20120813
  2. SOLIAN [Concomitant]
     Indication: PRODUCT USED FOR UNKNOWN INDICATION
  3. VALIUM (DIAZEPAM) [Concomitant]
     Indication: PRODUCT USED FOR UNKNOWN INDICATION
  4. PROFENID (KETOPROFEN) [Concomitant]
     Indication: PRODUCT USED FOR UNKNOWN INDICATION
  5. DOLIPRANE [Concomitant]
  6. LOVENOX (ENOXAPARIN SODIUM) [Concomitant]
     Indication: PRODUCT USED FOR UNKNOWN INDICATION
  7. ESOMEPRAZOLE [Concomitant]
     Indication: PRODUCT USED FOR UNKNOWN INDICATION

REACTIONS (1)
  - Hyperammonaemia [Unknown]
